FAERS Safety Report 4453549-X (Version None)
Quarter: 2004Q3

REPORT INFORMATION
  Report Type: 
  Country: None (occurrence: None)
  Receive Date: 20040920
  Receipt Date: 20040907
  Transmission Date: 20050211
  Serious: Yes (Death, Hospitalization)
  Sender: FDA-Public Use
  Company Number: JP-JNJFOC-20040801943

PATIENT
  Sex: Male
  Weight: 63.5 kg

DRUGS (18)
  1. REMICADE [Suspect]
     Route: 042
  2. REMICADE [Suspect]
     Indication: RHEUMATOID ARTHRITIS
     Route: 042
  3. RHEUMATREX [Concomitant]
     Dosage: START DATE: BEFORE 26-JAN-2004.
     Route: 049
  4. RHEUMATREX [Concomitant]
     Route: 049
  5. RHEUMATREX [Concomitant]
     Indication: RHEUMATOID ARTHRITIS
     Route: 049
  6. PREDONIN [Concomitant]
     Indication: RHEUMATOID ARTHRITIS
     Route: 049
  7. PREDONIN [Concomitant]
     Dosage: START DATE: BEFORE 06-JUL-2004
     Route: 042
  8. VOLTAREN [Concomitant]
     Dosage: START DATE: BEFORE 26-JAN-2004.
  9. FOLIAMIN [Concomitant]
     Dosage: START DATE: BEFORE 26-JAN-2004.
     Route: 049
  10. ZANTAC [Concomitant]
     Indication: GASTRIC ULCER
     Dosage: START DATE: BEFORE 26-JAN-2004
     Route: 049
  11. ALUMINUM HYDROXIDE AND MAGNESIUM TRISILICATE [Concomitant]
     Route: 049
  12. ALUMINUM HYDROXIDE AND MAGNESIUM TRISILICATE [Concomitant]
     Indication: GASTRIC ULCER
     Dosage: START DATE: BEFORE 26-JAN-2004
     Route: 049
  13. CYTOTEC [Concomitant]
     Indication: GASTRIC ULCER
     Dosage: START DATE: BEFORE 26-JAN-2004
     Route: 049
  14. HARNAL [Concomitant]
     Dosage: START DATE: BEFORE 26-JAN-2004.
     Route: 049
  15. SIGMART [Concomitant]
     Dosage: START DATE: BEFORE 26-JAN-2004.
     Route: 049
  16. DILTIAZEM HYDROCHLORIDE [Concomitant]
     Dosage: START DATE: BEFORE 26-JAN-2004.
     Route: 049
  17. NITRODERM [Concomitant]
     Dosage: START DATE: BEFORE 26-JAN-2004.
  18. LUDIOMIL [Concomitant]
     Indication: DEPRESSION
     Dosage: START DATE: BEFORE 26-JAN-2004.
     Route: 049

REACTIONS (12)
  - ACUTE MYOCARDIAL INFARCTION [None]
  - BURNING SENSATION [None]
  - CARDIAC ARREST [None]
  - CARDIAC FAILURE [None]
  - CONTUSION [None]
  - DEPRESSED LEVEL OF CONSCIOUSNESS [None]
  - FALL [None]
  - HOT FLUSH [None]
  - INFECTION [None]
  - INFUSION RELATED REACTION [None]
  - PAIN [None]
  - SEPTIC SHOCK [None]
